FAERS Safety Report 13405502 (Version 1)
Quarter: 2017Q2

REPORT INFORMATION
  Report Type: Spontaneous
  Country: US (occurrence: US)
  Receive Date: 20170405
  Receipt Date: 20170405
  Transmission Date: 20170830
  Serious: No
  Sender: FDA-Public Use
  Company Number: US-PFIZER INC-2017145482

PATIENT
  Sex: Female

DRUGS (1)
  1. LYRICA [Suspect]
     Active Substance: PREGABALIN
     Dosage: UNK

REACTIONS (6)
  - Dry mouth [Unknown]
  - Mouth swelling [Unknown]
  - Peripheral swelling [Unknown]
  - Salivary gland enlargement [Unknown]
  - Drug ineffective [Unknown]
  - Burning sensation [Unknown]
